FAERS Safety Report 7781538-6 (Version None)
Quarter: 2011Q3

REPORT INFORMATION
  Report Type: 
  Country: None (occurrence: None)
  Receive Date: 20110927
  Receipt Date: 20110920
  Transmission Date: 20111222
  Serious: Yes (Death, Life-Threatening, Hospitalization, Other)
  Sender: FDA-Public Use
  Company Number: JP-CEPHALON-US024269

PATIENT
  Sex: Male

DRUGS (10)
  1. CIPROFLOXACIN [Concomitant]
     Route: 041
     Dates: start: 20061120, end: 20061217
  2. HALOPERIDOL [Concomitant]
     Route: 041
     Dates: start: 20061201, end: 20061223
  3. LENOGRASTIM [Concomitant]
     Route: 041
     Dates: start: 20061221, end: 20061223
  4. HYDROCORTISONE SODIUM SUCCINATE [Concomitant]
     Route: 041
     Dates: start: 20061117, end: 20061204
  5. TRISENOX [Suspect]
     Indication: ACUTE PROMYELOCYTIC LEUKAEMIA
     Route: 041
     Dates: start: 20061115, end: 20061229
  6. MAGNESIUM [Concomitant]
     Indication: MAGNESIUM DEFICIENCY
     Route: 041
  7. CALCIUM CARBONATE [Concomitant]
     Indication: CALCIUM DEFICIENCY
     Route: 041
  8. MEROPENEM [Concomitant]
     Route: 041
     Dates: start: 20061120, end: 20070109
  9. GABEXATE MESILATE [Concomitant]
     Indication: DISSEMINATED INTRAVASCULAR COAGULATION
     Route: 041
     Dates: start: 20061114, end: 20061230
  10. TOBRAMYCIN [Concomitant]
     Route: 041
     Dates: start: 20061117, end: 20061224

REACTIONS (7)
  - PANCYTOPENIA [None]
  - DISSEMINATED INTRAVASCULAR COAGULATION [None]
  - BLOOD CALCIUM DECREASED [None]
  - COLON CANCER [None]
  - BLOOD ALKALINE PHOSPHATASE INCREASED [None]
  - PROTEIN TOTAL DECREASED [None]
  - BLOOD SODIUM DECREASED [None]
